FAERS Safety Report 5858402-2 (Version None)
Quarter: 2008Q3

REPORT INFORMATION
  Report Type: 
  Country: None (occurrence: None)
  Receive Date: 20080826
  Receipt Date: 20080821
  Transmission Date: 20090109
  Serious: Yes (Disabling)
  Sender: FDA-Public Use
  Company Number: US-PURDUE-USA_2008_0034566

PATIENT
  Age: 45 Year
  Sex: Female

DRUGS (3)
  1. OXYCONTIN [Suspect]
     Indication: CLUSTER HEADACHE
     Dosage: UNK MG, UNK
     Route: 048
     Dates: start: 20040101
  2. XANAX [Concomitant]
     Indication: FEELING OF RELAXATION
     Dosage: UNK MG, NOCTE
     Route: 048
  3. PREDNISONE FORTE [Concomitant]
     Indication: HERPES ZOSTER OPHTHALMIC
     Dosage: UNK, UNK

REACTIONS (2)
  - GLAUCOMA [None]
  - HERPES ZOSTER OPHTHALMIC [None]
